FAERS Safety Report 8220226-9 (Version None)
Quarter: 2012Q1

REPORT INFORMATION
  Report Type: 
  Country: None (occurrence: None)
  Receive Date: 20120320
  Receipt Date: 20120308
  Transmission Date: 20120608
  Serious: Yes (Hospitalization)
  Sender: FDA-Public Use
  Company Number: US-BAYER-2011-106428

PATIENT
  Age: 27 Year
  Sex: Female
  Weight: 59 kg

DRUGS (4)
  1. OMEPRAZOLE [Concomitant]
     Dosage: 20 MG, BID
  2. YAZ [Suspect]
     Dosage: UNK
     Dates: start: 20061201, end: 20090901
  3. DROSPIRENONE AND ETHINYL ESTRADIOL [Suspect]
     Dosage: UNK
     Route: 048
     Dates: start: 20061201, end: 20090901
  4. YASMIN [Suspect]
     Dosage: UNK
     Route: 048
     Dates: start: 20061201, end: 20090901

REACTIONS (7)
  - PAIN [None]
  - ANXIETY [None]
  - GENERAL PHYSICAL HEALTH DETERIORATION [None]
  - INJURY [None]
  - EMOTIONAL DISTRESS [None]
  - GALLBLADDER INJURY [None]
  - CHOLECYSTITIS CHRONIC [None]
